FAERS Safety Report 9678347 (Version 2)
Quarter: 2014Q1

REPORT INFORMATION
  Report Type: Spontaneous
  Country: US (occurrence: None)
  Receive Date: 20131106
  Receipt Date: 20140331
  Transmission Date: 20141002
  Serious: Yes (Hospitalization)
  Sender: FDA-Public Use
  Company Number: US-000847

PATIENT
  Sex: Female

DRUGS (2)
  1. GATEX [Suspect]
     Indication: SHORT-BOWEL SYNDROME
     Dosage: (0.195 ML QD, STREN/VOLUM: 0.195 ML/FREQU: ONCE A DAY SUBCUTANEOUS)
     Route: 058
     Dates: start: 2013
  2. SOLUTIONS FOR PARENTERAL NUTRITION [Concomitant]

REACTIONS (1)
  - Hiatus hernia [None]
